FAERS Safety Report 19628707 (Version 1)
Quarter: 2021Q3

REPORT INFORMATION
  Report Type: Spontaneous
  Country: JP (occurrence: JP)
  Receive Date: 20210729
  Receipt Date: 20210729
  Transmission Date: 20211014
  Serious: Yes (Hospitalization)
  Sender: FDA-Public Use
  Company Number: JP-ASTRAZENECA-2021A643829

PATIENT
  Sex: Female

DRUGS (2)
  1. FORXIGA [Suspect]
     Active Substance: DAPAGLIFLOZIN
     Dosage: DOSE UNKNOWN
     Route: 048
  2. NAILIN [Suspect]
     Active Substance: FOSRAVUCONAZOLE L-LYSINE ETHANOLATE
     Dosage: DOSE UNKNOWN
     Route: 065

REACTIONS (1)
  - Erythema multiforme [Recovering/Resolving]
